FAERS Safety Report 6944967-6 (Version None)
Quarter: 2010Q3

REPORT INFORMATION
  Report Type: 
  Country: None (occurrence: None)
  Receive Date: 20100827
  Receipt Date: 20100818
  Transmission Date: 20110219
  Serious: Yes (Hospitalization)
  Sender: FDA-Public Use
  Company Number: US-ASTRAZENECA-2010SE05543

PATIENT
  Age: 188 Month
  Sex: Male
  Weight: 119.3 kg

DRUGS (10)
  1. SEROQUEL [Suspect]
     Indication: OBSESSIVE-COMPULSIVE DISORDER
     Dosage: LESS THAN 100MG
     Route: 048
     Dates: start: 20080101, end: 20090501
  2. SEROQUEL [Suspect]
     Route: 048
     Dates: start: 20090501, end: 20091225
  3. SEROQUEL [Suspect]
     Route: 048
     Dates: start: 20091201
  4. SEROQUEL [Suspect]
     Dosage: 100 MG DURING THE DAY AND 200 MG AT NIGHT
     Route: 048
     Dates: start: 20100101
  5. DEPAKOTE [Concomitant]
  6. DEPAKOTE [Concomitant]
  7. DEPAKOTE [Concomitant]
  8. PROZAC [Concomitant]
  9. KLONOPIN [Concomitant]
  10. RISPERDAL [Concomitant]

REACTIONS (10)
  - AGITATION [None]
  - CONSTIPATION [None]
  - DRUG ADMINISTRATION ERROR [None]
  - DRY MOUTH [None]
  - EATING DISORDER [None]
  - GYNAECOMASTIA [None]
  - HYPERPHAGIA [None]
  - INTERMITTENT EXPLOSIVE DISORDER [None]
  - SLEEP DISORDER [None]
  - WEIGHT INCREASED [None]
